FAERS Safety Report 5250932-X (Version None)
Quarter: 2007Q1

REPORT INFORMATION
  Report Type: 
  Country: None (occurrence: None)
  Receive Date: 20070228
  Receipt Date: 20060814
  Transmission Date: 20070707
  Serious: Yes (Hospitalization, Other)
  Sender: FDA-Public Use
  Company Number: US-GLAXOSMITHKLINE-A0613968A

PATIENT
  Age: 65 Year
  Sex: Male
  Weight: 58.6 kg

DRUGS (3)
  1. LAMICTAL [Suspect]
     Indication: BIPOLAR DISORDER
     Dosage: 125MG TWICE PER DAY
     Route: 048
     Dates: start: 20060602, end: 20060728
  2. PROZAC [Concomitant]
     Route: 048
  3. ZYPREXA [Concomitant]
     Dates: start: 20060705, end: 20060718

REACTIONS (3)
  - DRUG ADMINISTRATION ERROR [None]
  - RASH [None]
  - RASH PRURITIC [None]
